FAERS Safety Report 7140955-8 (Version None)
Quarter: 2010Q4

REPORT INFORMATION
  Report Type: 
  Country: None (occurrence: None)
  Receive Date: 20101122
  Receipt Date: 20101108
  Transmission Date: 20110411
  Serious: Yes (Other)
  Sender: FDA-Public Use
  Company Number: ACO_20277_2010

PATIENT
  Age: 74 Year
  Sex: Female
  Weight: 56.2 kg

DRUGS (4)
  1. AMPYRA (DALFAMPRIDINE) TABLET, 10MG [Suspect]
     Indication: MULTIPLE SCLEROSIS
     Dosage: 10 MG, BID, ORAL; 10 MG, SINGLE
     Route: 048
     Dates: start: 20100811, end: 20100812
  2. AMPYRA (DALFAMPRIDINE) TABLET, 10MG [Suspect]
     Indication: MULTIPLE SCLEROSIS
     Dosage: 10 MG, BID, ORAL; 10 MG, SINGLE
     Route: 048
     Dates: start: 20100915, end: 20100915
  3. REBIF [Concomitant]
  4. METOPROLOL SUCCINATE [Concomitant]

REACTIONS (5)
  - ARTHROPATHY [None]
  - BALANCE DISORDER [None]
  - DISORIENTATION [None]
  - INAPPROPRIATE SCHEDULE OF DRUG ADMINISTRATION [None]
  - PANIC ATTACK [None]
